FAERS Safety Report 7866544-5 (Version None)
Quarter: 2011Q4

REPORT INFORMATION
  Report Type: 
  Country: None (occurrence: None)
  Receive Date: 20111028
  Receipt Date: 20110705
  Transmission Date: 20120403
  Serious: No
  Sender: FDA-Public Use
  Company Number: US-GLAXOSMITHKLINE-A0934937A

PATIENT
  Age: 54 Year
  Sex: Female

DRUGS (10)
  1. ADVAIR DISKUS 100/50 [Suspect]
     Indication: ASTHMA
     Dosage: 1PUFF TWICE PER DAY
     Route: 055
  2. LANTUS [Concomitant]
  3. NEXIUM [Concomitant]
  4. ASPIRIN [Concomitant]
  5. ATACAND [Concomitant]
  6. SINGULAIR [Concomitant]
  7. FEXOFENADINE [Concomitant]
  8. TRIAMTERENE AND HYDROCHLOROTHIAZIDE [Concomitant]
  9. SIMVASTATIN [Concomitant]
  10. PREDNISONE [Concomitant]

REACTIONS (5)
  - LIP DRY [None]
  - ABNORMAL SENSATION IN EYE [None]
  - DRY EYE [None]
  - VITREOUS FLOATERS [None]
  - DRY MOUTH [None]
